FAERS Safety Report 9889996 (Version 1)
Quarter: 2014Q1

REPORT INFORMATION
  Report Type: Spontaneous
  Country: US (occurrence: US)
  Receive Date: 20140212
  Receipt Date: 20140212
  Transmission Date: 20141002
  Serious: No
  Sender: FDA-Public Use
  Company Number: US-BIOGENIDEC-2014BI010564

PATIENT
  Age: 36 Year
  Sex: Female

DRUGS (1)
  1. TECFIDERA [Suspect]
     Indication: RELAPSING-REMITTING MULTIPLE SCLEROSIS
     Route: 048
     Dates: start: 201306, end: 20140127

REACTIONS (5)
  - Libido decreased [Recovered/Resolved]
  - Eye irritation [Recovered/Resolved]
  - Conjunctivitis [Recovered/Resolved]
  - Vision blurred [Recovered/Resolved]
  - Underdose [Recovered/Resolved]
